FAERS Safety Report 4758554-1 (Version None)
Quarter: 2005Q3

REPORT INFORMATION
  Report Type: 
  Country: None (occurrence: None)
  Receive Date: 20050826
  Receipt Date: 20050815
  Transmission Date: 20060218
  Serious: Yes (Hospitalization)
  Sender: FDA-Public Use
  Company Number: 2005EU001370

PATIENT
  Age: 56 Year
  Sex: Male

DRUGS (6)
  1. TACROLIMUS CAP/INJ(TACROLIMUS) CAPSULES [Suspect]
     Indication: LIVER TRANSPLANT
     Dosage: 2.00 MG, UID/QD, ORAL
     Route: 048
     Dates: start: 20050523, end: 20050617
  2. MEHTYLPREDNISOLONE (METHYLPREDNISOLONE) [Suspect]
     Indication: LIVER TRANSPLANT
     Dosage: 500.00 MG, UID/QD
     Dates: start: 20050523, end: 20050609
  3. PREDNISONE [Suspect]
     Indication: LIVER TRANSPLANT
     Dosage: 10.00 MG, UID/QD
     Dates: start: 20050524, end: 20050605
  4. METOPROLOL SUCCINATE [Concomitant]
  5. SULFAMETHOXPYRAZINE/TRIMETHOPRIM (SULFALENE, TRIMETHOPRIM) [Concomitant]
  6. ANTITHROMBIN III (ANTITHROMBIN III) [Concomitant]

REACTIONS (3)
  - POSTOPERATIVE WOUND COMPLICATION [None]
  - RENAL FAILURE [None]
  - RESPIRATORY FAILURE [None]
